FAERS Safety Report 5517981-5 (Version None)
Quarter: 2007Q4

REPORT INFORMATION
  Report Type: 
  Country: None (occurrence: None)
  Receive Date: 20071113
  Receipt Date: 20071101
  Transmission Date: 20080405
  Serious: Yes (Other)
  Sender: FDA-Public Use
  Company Number: 060044K07USA

PATIENT
  Age: 44 Year
  Sex: Female

DRUGS (2)
  1. SEROPHENE [Suspect]
     Indication: INFERTILITY
     Dates: start: 20070501
  2. HUMAN CHORIONIC GONADOTROPIN           (CHORIONIC GONADOTROPHIN) [Concomitant]

REACTIONS (2)
  - ABORTION SPONTANEOUS [None]
  - DRUG EXPOSURE DURING PREGNANCY [None]
